FAERS Safety Report 19844191 (Version 1)
Quarter: 2021Q3

REPORT INFORMATION
  Report Type: Spontaneous
  Country: JP (occurrence: JP)
  Receive Date: 20210916
  Receipt Date: 20210916
  Transmission Date: 20211014
  Serious: Yes (Death)
  Sender: FDA-Public Use
  Company Number: JP-TEVA-2021-JP-1952314

PATIENT
  Age: 5 Decade
  Sex: Male

DRUGS (3)
  1. SPIRONOLACTONE. [Suspect]
     Active Substance: SPIRONOLACTONE
     Indication: CONGESTIVE CARDIOMYOPATHY
     Dosage: 25 MILLIGRAM DAILY;
     Route: 065
  2. PERINDOPRIL [Suspect]
     Active Substance: PERINDOPRIL
     Indication: CONGESTIVE CARDIOMYOPATHY
     Dosage: 8 MILLIGRAM DAILY;
     Route: 065
  3. CARVEDILOL. [Suspect]
     Active Substance: CARVEDILOL
     Indication: CONGESTIVE CARDIOMYOPATHY
     Dosage: 10 MILLIGRAM DAILY;
     Route: 065

REACTIONS (3)
  - Withdrawal syndrome [Fatal]
  - Left ventricular dysfunction [Fatal]
  - Myocardial fibrosis [Fatal]
